FAERS Safety Report 9835929 (Version 2)
Quarter: 2014Q1

REPORT INFORMATION
  Report Type: Spontaneous
  Country: US (occurrence: US)
  Receive Date: 20140122
  Receipt Date: 20140122
  Transmission Date: 20141002
  Serious: Yes (Other)
  Sender: FDA-Public Use
  Company Number: US-UCBSA-100145

PATIENT
  Age: 68 Year
  Sex: Female
  Weight: 53.33 kg

DRUGS (5)
  1. CIMZIA [Suspect]
     Indication: RHEUMATOID ARTHRITIS
     Route: 058
     Dates: start: 201304, end: 201309
  2. GLUCOTROL [Concomitant]
     Indication: DIABETES MELLITUS
     Dosage: TAKING 2 YEARS
     Route: 048
  3. JENUVIA [Concomitant]
     Indication: DIABETES MELLITUS
     Dosage: TAKING FOR ABOUT 1 YEAR
     Route: 048
  4. ZOVIRAX [Concomitant]
     Indication: HERPES ZOSTER
     Route: 048
     Dates: start: 201310
  5. LEVIMIR [Concomitant]
     Indication: DIABETES MELLITUS
     Dosage: FLEX PEN, 10 ML OF INSULIN IN AM AND 5 ML IN PM, TAKING FOE LESS THAN A MONTH
     Route: 058

REACTIONS (8)
  - Herpes zoster [Not Recovered/Not Resolved]
  - Immunodeficiency [Unknown]
  - Skin swelling [Not Recovered/Not Resolved]
  - Erythema [Not Recovered/Not Resolved]
  - Hypersensitivity [Unknown]
  - Stress [Unknown]
  - Pain [Not Recovered/Not Resolved]
  - Pruritus [Not Recovered/Not Resolved]
